FAERS Safety Report 8556906-5 (Version None)
Quarter: 2012Q3

REPORT INFORMATION
  Report Type: 
  Country: None (occurrence: None)
  Receive Date: 20120801
  Receipt Date: 20120730
  Transmission Date: 20120928
  Serious: No
  Sender: FDA-Public Use
  Company Number: US-PFIZER INC-2012185041

PATIENT
  Sex: Female
  Weight: 67.574 kg

DRUGS (4)
  1. LYRICA [Suspect]
     Indication: NEURALGIA
     Dosage: 75 MG, 2X/DAY
     Route: 048
     Dates: start: 20120705, end: 20120701
  2. GLUCOPHAGE [Concomitant]
     Indication: DIABETES MELLITUS
     Dosage: UNK
  3. LISINOPRIL [Concomitant]
     Indication: HYPERTENSION
     Dosage: UNK
  4. LYRICA [Suspect]
     Indication: ARTHRALGIA
     Dosage: 75 MG, 1X/DAY
     Route: 048
     Dates: start: 20120701

REACTIONS (6)
  - BURNING SENSATION [None]
  - PAIN IN EXTREMITY [None]
  - RESTLESS LEGS SYNDROME [None]
  - DIZZINESS [None]
  - ASTHENIA [None]
  - DRUG INEFFECTIVE [None]
